FAERS Safety Report 20108983 (Version 1)
Quarter: 2021Q4

REPORT INFORMATION
  Report Type: Spontaneous
  Country: CN (occurrence: CN)
  Receive Date: 20211124
  Receipt Date: 20211124
  Transmission Date: 20220303
  Serious: Yes (Other)
  Sender: FDA-Public Use
  Company Number: CN-FRESENIUS KABI-FK202112795

PATIENT
  Age: 57 Year
  Sex: Female

DRUGS (2)
  1. KABIVEN [Suspect]
     Active Substance: AMINO ACIDS\ANHYDROUS DEXTROSE\CALCIUM CHLORIDE\MAGNESIUM SULFATE HEPTAHYDRATE\POTASSIUM CHLORIDE\SO
     Indication: Nutritional supplementation
     Dosage: UNKNOWN
     Route: 042
  2. ALBUMIN NOS [Concomitant]
     Indication: Nutritional supplementation
     Dosage: UNKNOWN
     Route: 042

REACTIONS (1)
  - Wernicke^s encephalopathy [Recovering/Resolving]
